FAERS Safety Report 14528403 (Version 1)
Quarter: 2018Q1

REPORT INFORMATION
  Report Type: Spontaneous
  Country: PT (occurrence: PT)
  Receive Date: 20180214
  Receipt Date: 20180214
  Transmission Date: 20180509
  Serious: Yes (Other)
  Sender: FDA-Public Use
  Company Number: PT-CIPLA LTD.-2018PT03865

PATIENT

DRUGS (1)
  1. BUDESONIDE. [Suspect]
     Active Substance: BUDESONIDE
     Indication: VASOMOTOR RHINITIS
     Dosage: UNK
     Route: 045

REACTIONS (3)
  - Nasal oedema [Recovered/Resolved]
  - Face oedema [Recovered/Resolved]
  - Dyshidrotic eczema [Recovered/Resolved]
